FAERS Safety Report 11662444 (Version 2)
Quarter: 2016Q1

REPORT INFORMATION
  Report Type: Spontaneous
  Country: US (occurrence: US)
  Receive Date: 20151027
  Receipt Date: 20160225
  Transmission Date: 20160525
  Serious: No
  Sender: FDA-Public Use
  Company Number: US-009507513-1510USA010139

PATIENT
  Age: 67 Year
  Sex: Female
  Weight: 105.21 kg

DRUGS (1)
  1. BELSOMRA [Suspect]
     Active Substance: SUVOREXANT
     Indication: INSOMNIA
     Dosage: 15 MG, QHS
     Route: 048
     Dates: start: 20150817, end: 20150821

REACTIONS (3)
  - Anxiety [Recovered/Resolved]
  - Palpitations [Recovered/Resolved]
  - Panic attack [Unknown]

NARRATIVE: CASE EVENT DATE: 20150817
